FAERS Safety Report 18257251 (Version 1)
Quarter: 2020Q3

REPORT INFORMATION
  Report Type: Spontaneous
  Country: US (occurrence: US)
  Receive Date: 20200911
  Receipt Date: 20200911
  Transmission Date: 20201103
  Serious: Yes (Other)
  Sender: FDA-Public Use
  Company Number: US-JNJFOC-20200910095

PATIENT
  Age: 21 Year
  Sex: Male
  Weight: 71.73 kg

DRUGS (1)
  1. TYLENOL PM [Suspect]
     Active Substance: ACETAMINOPHEN\DIPHENHYDRAMINE
     Indication: SLEEP DISORDER THERAPY
     Dosage: 2 TABLETS. TWICE DAILY
     Route: 048
     Dates: start: 20200710, end: 20200828

REACTIONS (3)
  - Product use in unapproved indication [Not Recovered/Not Resolved]
  - Dysuria [Not Recovered/Not Resolved]
  - Erectile dysfunction [Not Recovered/Not Resolved]

NARRATIVE: CASE EVENT DATE: 20200710
